FAERS Safety Report 6100128-4 (Version None)
Quarter: 2009Q1

REPORT INFORMATION
  Report Type: 
  Country: None (occurrence: None)
  Receive Date: 20090303
  Receipt Date: 20090224
  Transmission Date: 20090719
  Serious: Yes (Death)
  Sender: FDA-Public Use
  Company Number: JP-WYE-H08303409

PATIENT
  Sex: Female

DRUGS (6)
  1. HYPEN [Suspect]
     Indication: RHEUMATOID ARTHRITIS
     Route: 048
     Dates: start: 20090116, end: 20090213
  2. KETOPROFEN [Concomitant]
     Dosage: ^PROPER QUANTITY^
     Route: 065
     Dates: start: 20090116, end: 20090213
  3. ALENDRONATE SODIUM [Concomitant]
     Route: 048
     Dates: start: 20090116, end: 20090213
  4. TOCOPHERYL NICOTINATE [Concomitant]
     Route: 065
     Dates: start: 20090116, end: 20090213
  5. PREDNISOLONE [Concomitant]
     Indication: RHEUMATOID ARTHRITIS
     Route: 048
     Dates: start: 20090116, end: 20090213
  6. ROXATIDINE ACETATE HYDRCHLORIDE [Concomitant]
     Route: 048
     Dates: start: 20090116, end: 20090213

REACTIONS (1)
  - DEATH [None]
